FAERS Safety Report 8976693 (Version 1)
Quarter: 2012Q4

REPORT INFORMATION
  Report Type: 
  Country: US (occurrence: US)
  Receive Date: 20121219
  Receipt Date: 20121219
  Transmission Date: 20130627
  Serious: No
  Sender: FDA-Public Use
  Company Number: US-AMGEN-USASP2012060479

PATIENT
  Sex: Female

DRUGS (2)
  1. PROLIA [Suspect]
     Indication: BONE LOSS
     Dosage: UNK
     Dates: start: 201204
  2. AROMATASE INHIBITORS [Concomitant]
     Dosage: UNK

REACTIONS (1)
  - Arthritis [Unknown]
